FAERS Safety Report 10598782 (Version 1)
Quarter: 2014Q4

REPORT INFORMATION
  Report Type: Spontaneous
  Country: US (occurrence: US)
  Receive Date: 20141121
  Receipt Date: 20141121
  Transmission Date: 20150529
  Serious: No
  Sender: FDA-Public Use
  Company Number: US-PFIZER INC-2014319717

PATIENT
  Sex: Male
  Weight: 109 kg

DRUGS (3)
  1. NIASPAN [Suspect]
     Active Substance: NIACIN
     Indication: BLOOD CHOLESTEROL INCREASED
     Dosage: 750 MG AM, 2X/DAY
     Route: 048
     Dates: start: 2011, end: 201408
  2. TRICOR [Suspect]
     Active Substance: FENOFIBRATE
     Dosage: UNK
     Route: 048
     Dates: start: 2011, end: 201408
  3. LIPITOR [Suspect]
     Active Substance: ATORVASTATIN CALCIUM
     Indication: BLOOD CHOLESTEROL INCREASED
     Dosage: UNK
     Route: 048
     Dates: start: 201406, end: 201408

REACTIONS (3)
  - Musculoskeletal chest pain [Unknown]
  - Blood creatine phosphokinase increased [Unknown]
  - Pain in extremity [Unknown]

NARRATIVE: CASE EVENT DATE: 201403
